FAERS Safety Report 24173788 (Version 2)
Quarter: 2024Q3

REPORT INFORMATION
  Report Type: Spontaneous
  Country: US (occurrence: US)
  Receive Date: 20240805
  Receipt Date: 20240920
  Transmission Date: 20241016
  Serious: Yes (Other)
  Sender: HIKMA
  Company Number: US-HIKMA PHARMACEUTICALS USA INC.-US-H14001-24-04042

PATIENT
  Sex: Female

DRUGS (1)
  1. MORPHINE SULFATE [Suspect]
     Active Substance: MORPHINE SULFATE
     Indication: Renal pain
     Dosage: FOR A DAY OR SO
     Route: 065
     Dates: start: 202210

REACTIONS (6)
  - Drug hypersensitivity [Unknown]
  - Loss of consciousness [Unknown]
  - Tremor [Unknown]
  - Feeling cold [Unknown]
  - Chills [Unknown]
  - Vomiting [Unknown]
